FAERS Safety Report 17260578 (Version 1)
Quarter: 2020Q1

REPORT INFORMATION
  Report Type: Spontaneous
  Country: CA (occurrence: CA)
  Receive Date: 20200113
  Receipt Date: 20200113
  Transmission Date: 20200409
  Serious: Yes (Life-Threatening, Hospitalization, Other)
  Sender: FDA-Public Use
  Company Number: CA-DRREDDYS-USA/CAN/20/0118420

PATIENT
  Age: 52 Year
  Sex: Male

DRUGS (3)
  1. ESTRADIOL HEMIHYDRATE [Suspect]
     Active Substance: ESTRADIOL HEMIHYDRATE
     Indication: TRANSGENDER HORMONAL THERAPY
     Route: 060
  2. BUSERELIN ACETATE [Suspect]
     Active Substance: BUSERELIN ACETATE
     Indication: TRANSGENDER HORMONAL THERAPY
     Route: 065
  3. PROGESTERONE CAPSULES [Suspect]
     Active Substance: PROGESTERONE
     Indication: TRANSGENDER HORMONAL THERAPY
     Route: 065

REACTIONS (1)
  - Atrial fibrillation [Unknown]
